FAERS Safety Report 4819586-8 (Version None)
Quarter: 2005Q4

REPORT INFORMATION
  Report Type: 
  Country: None (occurrence: None)
  Receive Date: 20051102
  Receipt Date: 20051102
  Transmission Date: 20060501
  Serious: Yes (Hospitalization)
  Sender: FDA-Public Use
  Company Number: None

PATIENT
  Age: 75 Year
  Sex: Female
  Weight: 99 kg

DRUGS (13)
  1. OXANDRIN [Suspect]
     Indication: WEIGHT DECREASED
     Dosage: 10 MG BID PO
     Route: 048
     Dates: start: 20050908
  2. ARANESP [Concomitant]
  3. CARBOPLATIN [Concomitant]
  4. LEUKINE [Concomitant]
  5. KYTRIL [Concomitant]
  6. DEXAMETHASONE [Concomitant]
  7. MAXZIDE [Concomitant]
  8. BENTYL [Concomitant]
  9. PHENERGAN [Concomitant]
  10. LIPITOR [Concomitant]
  11. ULTRAM [Concomitant]
  12. ECOTRIN [Concomitant]
  13. VASOTEC [Concomitant]

REACTIONS (1)
  - DIARRHOEA [None]
